FAERS Safety Report 10502221 (Version 3)
Quarter: 2015Q3

REPORT INFORMATION
  Report Type: Spontaneous
  Country: DK (occurrence: DK)
  Receive Date: 20141007
  Receipt Date: 20150928
  Transmission Date: 20151125
  Serious: Yes (Hospitalization)
  Sender: FDA-Public Use
  Company Number: PHHY2014DK128907

PATIENT
  Age: 70 Year
  Sex: Female

DRUGS (2)
  1. BONDRONAT//IBANDRONIC ACID [Suspect]
     Active Substance: IBANDRONIC ACID
     Indication: METASTASES TO BONE
     Dosage: 50 MG, UNK
     Route: 048
     Dates: start: 20130701, end: 20140429
  2. ZOMETA [Suspect]
     Active Substance: ZOLEDRONIC ACID
     Indication: METASTASES TO BONE
     Dosage: 4 MG, (EVERY THREE WEEKS)
     Route: 042
     Dates: start: 20121001

REACTIONS (4)
  - Bone graft removal [Unknown]
  - Oral cavity fistula [Unknown]
  - Exposed bone in jaw [Unknown]
  - Osteonecrosis of jaw [Recovering/Resolving]

NARRATIVE: CASE EVENT DATE: 20140522
